FAERS Safety Report 5253732-X (Version None)
Quarter: 2007Q1

REPORT INFORMATION
  Report Type: 
  Country: None (occurrence: None)
  Receive Date: 20070227
  Receipt Date: 20070212
  Transmission Date: 20070707
  Serious: Yes (Other)
  Sender: FDA-Public Use
  Company Number: 2007304474

PATIENT
  Sex: Male

DRUGS (1)
  1. BENADRYL [Suspect]
     Indication: POSTNASAL DRIP
     Dosage: 12.5 MG (12.5 MG), ORAL
     Route: 048

REACTIONS (2)
  - CORONARY ARTERY OCCLUSION [None]
  - HALLUCINATION, VISUAL [None]
